FAERS Safety Report 23153146 (Version 2)
Quarter: 2023Q4

REPORT INFORMATION
  Report Type: Report from Study
  Country: GB (occurrence: GB)
  Receive Date: 20231107
  Receipt Date: 20231115
  Transmission Date: 20240109
  Serious: Yes (Hospitalization, Disabling)
  Sender: FDA-Public Use
  Company Number: GB-SANDOZ-SDZ2023GB050902

PATIENT
  Sex: Male

DRUGS (3)
  1. HYRIMOZ [Suspect]
     Active Substance: ADALIMUMAB-ADAZ
     Indication: Hidradenitis
     Dosage: 40 MG, QW; 40MG/0.8ML, PRE-FILLED PENS 2 PRE-FILLED DISPOSABLE INJECTION
     Route: 058
     Dates: start: 20231102
  2. HYRIMOZ [Suspect]
     Active Substance: ADALIMUMAB-ADAZ
     Dosage: 160 MG
     Route: 058
  3. HYRIMOZ [Suspect]
     Active Substance: ADALIMUMAB-ADAZ
     Dosage: 80 MG
     Route: 058

REACTIONS (4)
  - Scrotal cyst [Unknown]
  - Abscess [Recovering/Resolving]
  - Learning disability [Unknown]
  - Injection site discomfort [Unknown]
